FAERS Safety Report 5561099-2 (Version None)
Quarter: 2007Q4

REPORT INFORMATION
  Report Type: 
  Country: None (occurrence: None)
  Receive Date: 20071215
  Receipt Date: 20071031
  Transmission Date: 20080405
  Serious: No
  Sender: FDA-Public Use
  Company Number: US-AMGEN-KDL250486

PATIENT
  Sex: Female

DRUGS (12)
  1. ENBREL [Suspect]
     Indication: RHEUMATOID ARTHRITIS
     Dates: start: 20061101, end: 20071001
  2. METHOTREXATE [Concomitant]
  3. ATENOLOL [Concomitant]
  4. TRIAMTERENE AND HYDROCHLOROTHIAZIDE [Concomitant]
  5. FOLIC ACID [Concomitant]
  6. ASPIRIN [Concomitant]
  7. ACTONEL [Concomitant]
  8. FLONASE [Concomitant]
  9. NIACIN [Concomitant]
  10. VIVELLE [Concomitant]
  11. SINGULAIR [Concomitant]
  12. ZETIA [Concomitant]

REACTIONS (2)
  - GUTTATE PSORIASIS [None]
  - PSORIASIS [None]
